FAERS Safety Report 13503546 (Version 1)
Quarter: 2017Q2

REPORT INFORMATION
  Report Type: Spontaneous
  Country: US (occurrence: US)
  Receive Date: 20170502
  Receipt Date: 20170502
  Transmission Date: 20170830
  Serious: Yes (Hospitalization)
  Sender: FDA-Public Use
  Company Number: None

PATIENT
  Age: 13 Year
  Sex: Female

DRUGS (13)
  1. OMEPRAZOLE. [Concomitant]
     Active Substance: OMEPRAZOLE
  2. TYLENOL [Concomitant]
     Active Substance: ACETAMINOPHEN
  3. FLOVENT DISK [Concomitant]
  4. VENTOLIN [Concomitant]
     Active Substance: ALBUTEROL SULFATE
  5. VITAMINS [Concomitant]
     Active Substance: VITAMINS
  6. DORZOLAMIDE [Concomitant]
     Active Substance: DORZOLAMIDE
  7. AMITRIPTYLINE [Concomitant]
     Active Substance: AMITRIPTYLINE
  8. URSODIOL. [Concomitant]
     Active Substance: URSODIOL
  9. CYPROHEPTAD [Concomitant]
  10. TRAVATAN [Concomitant]
     Active Substance: TRAVOPROST
  11. PULMOZYME [Suspect]
     Active Substance: DORNASE ALFA
     Indication: CYSTIC FIBROSIS
     Dosage: DOSE - 1 VIAL - DAILY - INHALATION
     Route: 055
     Dates: start: 20170203
  12. BENADRYL ALG [Concomitant]
  13. SYSTANE (HYPROMELLOSE 2910 (4000 MPA.S)) [Concomitant]
     Active Substance: HYPROMELLOSE 2910 (4000 MPA.S)

REACTIONS (2)
  - Seizure [None]
  - Abdominal pain upper [None]

NARRATIVE: CASE EVENT DATE: 201612
